FAERS Safety Report 6138054-7 (Version None)
Quarter: 2009Q1

REPORT INFORMATION
  Report Type: 
  Country: None (occurrence: None)
  Receive Date: 20090327
  Receipt Date: 20090327
  Transmission Date: 20090719
  Serious: Yes (Other)
  Sender: FDA-Public Use
  Company Number: None

PATIENT
  Age: 8 Year
  Sex: Male
  Weight: 31.8 kg

DRUGS (1)
  1. FOSPHENYTOIN SODIUM [Suspect]
     Indication: CONVULSION
     Dosage: 210 MG DAILY IV
     Route: 042
     Dates: start: 20090223, end: 20090317

REACTIONS (3)
  - LETHARGY [None]
  - MOBILITY DECREASED [None]
  - THERAPEUTIC AGENT TOXICITY [None]
